FAERS Safety Report 7760527-1 (Version None)
Quarter: 2011Q3

REPORT INFORMATION
  Report Type: 
  Country: None (occurrence: None)
  Receive Date: 20110919
  Receipt Date: 20110908
  Transmission Date: 20111222
  Serious: Yes (Hospitalization, Other)
  Sender: FDA-Public Use
  Company Number: US-ELI_LILLY_AND_COMPANY-US201107002302

PATIENT
  Sex: Female

DRUGS (5)
  1. CRESTOR [Concomitant]
     Dosage: UNK
  2. HUMALOG [Suspect]
     Dosage: SLIDING SCALE
     Dates: start: 20100901
  3. HUMULIN 70/30 [Suspect]
     Indication: TYPE 2 DIABETES MELLITUS
     Dosage: SLIDING SCALE
     Dates: end: 20100901
  4. LANTUS [Concomitant]
     Dosage: 53 U, EACH MORNING
     Dates: start: 20101101
  5. HUMALOG [Suspect]
     Indication: TYPE 2 DIABETES MELLITUS
     Dosage: SLIDING SCALE
     Dates: start: 20100901

REACTIONS (11)
  - BLINDNESS UNILATERAL [None]
  - EYE HAEMORRHAGE [None]
  - BLOOD GLUCOSE INCREASED [None]
  - VISION BLURRED [None]
  - VISUAL IMPAIRMENT [None]
  - RETINAL DETACHMENT [None]
  - EYE EXCISION [None]
  - EYE PROSTHESIS INSERTION [None]
  - INJECTION SITE ERYTHEMA [None]
  - RETINAL TEAR [None]
  - BLOOD PRESSURE INCREASED [None]
